FAERS Safety Report 9549872 (Version 2)
Quarter: 2013Q4

REPORT INFORMATION
  Report Type: Report from Study
  Country: US (occurrence: US)
  Receive Date: 20130924
  Receipt Date: 20131101
  Transmission Date: 20140711
  Serious: Yes (Hospitalization)
  Sender: FDA-Public Use
  Company Number: US-ACTELION-A-NJ2013-88960

PATIENT
  Age: 10 Year
  Sex: Female

DRUGS (1)
  1. TRACLEER [Suspect]
     Indication: PULMONARY ARTERIAL HYPERTENSION
     Dosage: UNK
     Route: 048
     Dates: start: 20130822, end: 20130923

REACTIONS (3)
  - Patent ductus arteriosus [Recovering/Resolving]
  - Patent ductus arteriosus repair [Recovering/Resolving]
  - Aortic surgery [Recovering/Resolving]
